FAERS Safety Report 10428465 (Version 2)
Quarter: 2014Q3

REPORT INFORMATION
  Report Type: Spontaneous
  Country: DE (occurrence: JP)
  Receive Date: 20140903
  Receipt Date: 20140922
  Transmission Date: 20150326
  Serious: Yes (Hospitalization)
  Sender: FDA-Public Use
  Company Number: JP-FRI-1000070373

PATIENT
  Age: 76 Year
  Sex: Male
  Weight: 46 kg

DRUGS (9)
  1. MEMANTINE [Suspect]
     Active Substance: MEMANTINE
     Indication: DEMENTIA ALZHEIMER^S TYPE
     Dosage: 15 MG
     Route: 048
     Dates: start: 20140703, end: 20140729
  2. MEMANTINE [Suspect]
     Active Substance: MEMANTINE
     Dosage: 10 MG
     Route: 048
     Dates: start: 20140403, end: 20140702
  3. MEMANTINE [Suspect]
     Active Substance: MEMANTINE
     Dosage: 5 MG
     Route: 048
     Dates: start: 20140730, end: 20140819
  4. EXELON [Concomitant]
     Active Substance: RIVASTIGMINE TARTRATE
     Dates: start: 20130415
  5. REZALTAS [Concomitant]
     Active Substance: AZELNIDIPINE\OLMESARTAN MEDOXOMIL
     Dosage: 20/ 16 MG
     Dates: start: 20120621
  6. MEMANTINE [Suspect]
     Active Substance: MEMANTINE
     Indication: DEMENTIA ALZHEIMER^S TYPE
     Dosage: 5 MG
     Route: 048
     Dates: start: 20140306, end: 20140402
  7. MENESIT [Concomitant]
     Active Substance: CARBIDOPA\LEVODOPA
     Dates: start: 20100517
  8. GRAMALIL [Concomitant]
     Active Substance: TIAPRIDE HYDROCHLORIDE
     Dates: start: 20130415
  9. PLETAAL [Concomitant]
     Active Substance: CILOSTAZOL
     Dates: start: 20090209

REACTIONS (1)
  - Decreased appetite [Recovered/Resolved]

NARRATIVE: CASE EVENT DATE: 20140729
